FAERS Safety Report 7726342-X (Version None)
Quarter: 2011Q3

REPORT INFORMATION
  Report Type: 
  Country: None (occurrence: None)
  Receive Date: 20110902
  Receipt Date: 20110825
  Transmission Date: 20111222
  Serious: Yes (Hospitalization)
  Sender: FDA-Public Use
  Company Number: DE-ABBOTT-11P-062-0849439-00

PATIENT
  Sex: Male

DRUGS (1)
  1. HUMIRA [Suspect]
     Indication: CROHN'S DISEASE
     Dates: start: 20100823, end: 20110710

REACTIONS (4)
  - WEIGHT DECREASED [None]
  - DRUG INEFFECTIVE [None]
  - ABDOMINAL PAIN [None]
  - CROHN'S DISEASE [None]
